FAERS Safety Report 13696947 (Version 1)
Quarter: 2017Q2

REPORT INFORMATION
  Report Type: Spontaneous
  Country: US (occurrence: US)
  Receive Date: 20170627
  Receipt Date: 20170627
  Transmission Date: 20170830
  Serious: No
  Sender: FDA-Public Use
  Company Number: None

PATIENT
  Age: 56 Year
  Sex: Female
  Weight: 68.4 kg

DRUGS (1)
  1. BOTOX [Suspect]
     Active Substance: ONABOTULINUMTOXINA
     Dosage: ?          OTHER DOSE:KG;OTHER FREQUENCY:ONE TIME;?

REACTIONS (4)
  - Feeling abnormal [None]
  - Pain [None]
  - Musculoskeletal stiffness [None]
  - Asthenia [None]

NARRATIVE: CASE EVENT DATE: 20170316
